FAERS Safety Report 12618763 (Version 2)
Quarter: 2016Q3

REPORT INFORMATION
  Report Type: Spontaneous
  Country: US (occurrence: US)
  Receive Date: 20160803
  Receipt Date: 20160812
  Transmission Date: 20161109
  Serious: No
  Sender: FDA-Public Use
  Company Number: US-009507513-1608USA000194

PATIENT
  Age: 26 Year
  Sex: Female

DRUGS (3)
  1. FOLLISTIM [Suspect]
     Active Substance: FOLLITROPIN
     Indication: OOCYTE HARVEST
     Dosage: UNK
  2. GONAL-F [Suspect]
     Active Substance: FOLLITROPIN
     Indication: OOCYTE HARVEST
     Dosage: UNK
  3. GANIRELIX ACETATE INJECTION [Suspect]
     Active Substance: GANIRELIX ACETATE
     Indication: OOCYTE HARVEST
     Dosage: UNK
     Dates: start: 201607

REACTIONS (1)
  - Drug ineffective [Unknown]

NARRATIVE: CASE EVENT DATE: 201607
